FAERS Safety Report 25379038 (Version 4)
Quarter: 2025Q2

REPORT INFORMATION
  Report Type: Spontaneous
  Country: KR (occurrence: KR)
  Receive Date: 20250530
  Receipt Date: 20250630
  Transmission Date: 20250717
  Serious: Yes (Death)
  Sender: MERCK SHARP & DOHME LLC
  Company Number: KR-009507513-2289577

PATIENT
  Age: 83 Year
  Sex: Male
  Weight: 49 kg

DRUGS (14)
  1. KEYTRUDA [Suspect]
     Active Substance: PEMBROLIZUMAB
     Indication: Non-small cell lung cancer stage IV
     Route: 042
     Dates: start: 20250415, end: 20250509
  2. melatonin CIRCADIN [Concomitant]
     Dates: start: 20250305
  3. erdosteine ERDOS [Concomitant]
     Dates: start: 20250309
  4. tamsulosin hydrochloride HARNAL D [Concomitant]
     Dates: start: 20250311
  5. JARDIANCE [Concomitant]
     Active Substance: EMPAGLIFLOZIN
     Dates: start: 2024
  6. LIPITOR [Concomitant]
     Active Substance: ATORVASTATIN CALCIUM
     Dates: start: 2024
  7. esomeprazole magnesium NEXIUM [Concomitant]
     Dates: start: 2024
  8. quetiapine fumarate QUETAPIN [Concomitant]
     Dates: start: 20250304
  9. tranexamic acid TRANSAMIN [Concomitant]
     Dates: start: 20250326
  10. BISOPROLOL FUMARATE [Concomitant]
     Active Substance: BISOPROLOL FUMARATE
     Indication: Atrial fibrillation
     Dates: start: 20250409
  11. digoxin(digoxin) [Concomitant]
     Indication: Atrial fibrillation
     Dates: start: 20250519, end: 20250519
  12. Herben(diltiazem hydrochloride) [Concomitant]
     Indication: Atrial fibrillation
     Dates: start: 20250519, end: 20250519
  13. lasix(furosemide) [Concomitant]
     Dates: start: 20250519, end: 20250519
  14. nitrolingual(glyceryl trinitrate) [Concomitant]
     Indication: Prophylaxis
     Dates: start: 20250519, end: 20250519

REACTIONS (1)
  - Immune-mediated lung disease [Fatal]

NARRATIVE: CASE EVENT DATE: 20250519
